FAERS Safety Report 6365789-3 (Version None)
Quarter: 2009Q3

REPORT INFORMATION
  Report Type: 
  Country: None (occurrence: None)
  Receive Date: 20090919
  Receipt Date: 20090824
  Transmission Date: 20100115
  Serious: No
  Sender: FDA-Public Use
  Company Number: US-ABBOTT-09P-163-0593639-00

PATIENT
  Sex: Male
  Weight: 113.5 kg

DRUGS (3)
  1. HUMIRA [Suspect]
     Indication: PSORIATIC ARTHROPATHY
     Dates: start: 20050101
  2. ALLERGY [Suspect]
     Indication: SEASONAL ALLERGY
     Dates: start: 20090101, end: 20090801
  3. XYZAL [Concomitant]
     Indication: ANTIALLERGIC THERAPY

REACTIONS (4)
  - ARTHRALGIA [None]
  - BLOOD TRIGLYCERIDES INCREASED [None]
  - OEDEMA PERIPHERAL [None]
  - PSORIASIS [None]
